FAERS Safety Report 7065540-8 (Version None)
Quarter: 2010Q4

REPORT INFORMATION
  Report Type: 
  Country: None (occurrence: None)
  Receive Date: 20101027
  Receipt Date: 20101018
  Transmission Date: 20110411
  Serious: Yes (Life-Threatening, Other)
  Sender: FDA-Public Use
  Company Number: CA-BAYER-201042979GPV

PATIENT
  Sex: Male

DRUGS (21)
  1. CIPROFLOXACIN [Suspect]
     Indication: PNEUMONIA ASPIRATION
     Dosage: Q12H EVERY 12 HOURS (2 DOSES)
     Route: 042
  2. METHADONE [Interacting]
     Indication: DRUG WITHDRAWAL MAINTENANCE THERAPY
     Dosage: (RESTARTED WITH HALF THE ORIGINAL DOSE) NIGHTLY FOR 5 DAYS
     Route: 048
  3. METHADONE [Interacting]
     Dosage: AS USED: 25 MG
     Route: 048
  4. METHADONE [Interacting]
     Dosage: TOTAL DAILY DOSE: 50 MG
     Route: 048
  5. DALTEPARIN SODIUM [Concomitant]
     Route: 058
  6. THIAMINE HCL [Concomitant]
     Route: 048
  7. FOLIC ACID [Concomitant]
     Route: 048
  8. MORPHINE [Concomitant]
     Indication: PAIN
     Dosage: 4 DOSES
     Route: 042
  9. MORPHINE [Concomitant]
     Dosage: 5-10 MG (2 DOSES)
     Route: 058
  10. MORPHINE [Concomitant]
     Dosage: 3 DOSES DURING NALOXONE INFUSION
  11. MORPHINE [Concomitant]
     Dosage: 5-10 MG (9 DOSES)
     Route: 048
  12. ACETAMINOPHEN [Concomitant]
     Dosage: 3 DOSES OF 2 TABLETS
     Route: 048
  13. CEFUROXIME [Concomitant]
     Indication: PNEUMONIA ASPIRATION
     Dosage: EVERY 8 HOURS
     Route: 042
  14. SALBUTAMOL [Concomitant]
     Indication: BRONCHIAL OBSTRUCTION
     Dosage: NEBULIZED
     Route: 045
  15. IPRATROPIUM BROMIDE [Concomitant]
     Indication: BRONCHIAL OBSTRUCTION
     Dosage: NEBULIZED
     Route: 045
  16. METHOTRIMEPRAZINE [Concomitant]
     Dosage: 10-15 MG AT BEDTIME AS NEEDED (4 DOSES)
     Route: 048
  17. METHOTRIMEPRAZINE [Concomitant]
     Dosage: WITHHELD FOR THREE NIGHTS
  18. ANTIBIOTICS [Concomitant]
  19. CLINDAMYCIN [Concomitant]
     Indication: PNEUMONIA ASPIRATION
     Dosage: EVERY 8 HOURS (2 DOSES)
     Route: 042
  20. TICARCILLIN-CLAVULANATE [Concomitant]
     Dosage: EVERY 6 HOURS
     Route: 042
  21. AMOXICILLIN AND CLAVULANATE POTASSIUM [Concomitant]
     Dosage: 500/125 MG EVERY 8 HOURS
     Route: 048

REACTIONS (6)
  - DEPRESSED LEVEL OF CONSCIOUSNESS [None]
  - DRUG INTERACTION [None]
  - DRUG TOXICITY [None]
  - MIOSIS [None]
  - RESPIRATORY DEPRESSION [None]
  - SOMNOLENCE [None]
